FAERS Safety Report 4626191-5 (Version None)
Quarter: 2005Q2

REPORT INFORMATION
  Report Type: 
  Country: None (occurrence: None)
  Receive Date: 20050404
  Receipt Date: 20050323
  Transmission Date: 20051028
  Serious: No
  Sender: FDA-Public Use
  Company Number: JP-BOEHRINGER INGELHEIM PHARMACEUTICALS, INC.-2005-BP-04876YA

PATIENT
  Age: 73 Year
  Sex: Male

DRUGS (6)
  1. HARNAL [Suspect]
     Indication: BENIGN PROSTATIC HYPERPLASIA
     Dosage: 0.2 MG AM
     Route: 048
     Dates: start: 20050218, end: 20050219
  2. METOCLOPRAMIDE [Concomitant]
     Route: 048
  3. URSODEOXYCHOLIC ACID [Concomitant]
     Route: 048
     Dates: start: 20021107
  4. EXCELASE [Concomitant]
     Dosage: 3 DF
     Route: 048
     Dates: start: 19960816
  5. CARBOCISTEINE [Concomitant]
     Route: 048
     Dates: start: 20041115, end: 20050117
  6. CLARITHROMYCIN [Concomitant]
     Route: 048
     Dates: start: 20041122, end: 20050117

REACTIONS (5)
  - AGGRESSION [None]
  - AMNESIA [None]
  - DELIRIUM [None]
  - EXCITABILITY [None]
  - TREMOR [None]
